FAERS Safety Report 8800864 (Version 2)
Quarter: 2015Q1

REPORT INFORMATION
  Report Type: Report from Study
  Country: US (occurrence: US)
  Receive Date: 20120920
  Receipt Date: 20150305
  Transmission Date: 20150721
  Serious: Yes (Death)
  Sender: FDA-Public Use
  Company Number: US-ROCHE-1102387

PATIENT
  Sex: Female

DRUGS (12)
  1. AVASTIN [Suspect]
     Active Substance: BEVACIZUMAB
     Indication: COLON CANCER
     Dosage: CONTINUED FOR 1 YEAR.
     Route: 042
     Dates: start: 200511
  2. NIFEREX (UNITED STATES) [Concomitant]
  3. AVASTIN [Suspect]
     Active Substance: BEVACIZUMAB
     Route: 042
     Dates: start: 20080707
  4. CYTOXAN [Concomitant]
     Active Substance: CYCLOPHOSPHAMIDE
     Route: 065
     Dates: start: 200702, end: 200704
  5. AVASTIN [Suspect]
     Active Substance: BEVACIZUMAB
     Indication: LUNG NEOPLASM MALIGNANT
     Dosage: DISCONTINUED ON UNKNWON DATE
     Route: 042
     Dates: start: 20080428
  6. CAMPTOSAR [Concomitant]
     Active Substance: IRINOTECAN HYDROCHLORIDE
     Route: 065
     Dates: start: 200511, end: 200608
  7. ZOFRAN [Concomitant]
     Active Substance: ONDANSETRON HYDROCHLORIDE
  8. LOVENOX [Concomitant]
     Active Substance: ENOXAPARIN SODIUM
  9. TARCEVA [Suspect]
     Active Substance: ERLOTINIB HYDROCHLORIDE
     Indication: PRODUCT USED FOR UNKNOWN INDICATION
     Route: 065
     Dates: start: 20080428
  10. ERBITUX [Concomitant]
     Active Substance: CETUXIMAB
  11. LEUCOVORIN [Concomitant]
     Active Substance: LEUCOVORIN
     Route: 065
     Dates: start: 200511, end: 200608
  12. 5-FU [Concomitant]
     Active Substance: FLUOROURACIL
     Route: 065
     Dates: start: 200511, end: 200608

REACTIONS (8)
  - Death [Fatal]
  - Fatigue [Unknown]
  - Neoplasm [Unknown]
  - Hypokalaemia [Unknown]
  - Vomiting [Unknown]
  - Dyslipidaemia [Unknown]
  - Anaemia [Unknown]
  - Disease progression [Unknown]
